FAERS Safety Report 4888616-X (Version None)
Quarter: 2006Q1

REPORT INFORMATION
  Report Type: 
  Country: None (occurrence: None)
  Receive Date: 20060123
  Receipt Date: 20060113
  Transmission Date: 20060701
  Serious: Yes (Hospitalization)
  Sender: FDA-Public Use
  Company Number: US-ABBOTT-06P-163-0322062-00

PATIENT
  Sex: Female
  Weight: 63.56 kg

DRUGS (1)
  1. BIAXIN XL [Suspect]
     Indication: PNEUMONIA
     Route: 048
     Dates: start: 20030101, end: 20030101

REACTIONS (2)
  - BLOOD CREATININE DECREASED [None]
  - RENAL VASCULITIS [None]
